FAERS Safety Report 9746968 (Version 2)
Quarter: 2014Q1

REPORT INFORMATION
  Report Type: Spontaneous
  Country: GB (occurrence: GB)
  Receive Date: 20131211
  Receipt Date: 20140319
  Transmission Date: 20141002
  Serious: Yes (Other)
  Sender: FDA-Public Use
  Company Number: GB-MYLANLABS-2013S1026899

PATIENT
  Age: 51 Year
  Sex: Male
  Weight: 68.5 kg

DRUGS (4)
  1. LANSOPRAZOLE [Suspect]
     Indication: PROPHYLAXIS
     Route: 048
     Dates: end: 20131115
  2. ATENOLOL [Concomitant]
     Indication: HYPERTENSION
     Dates: start: 1997
  3. BENDROFLUMETHIAZIDE [Concomitant]
     Indication: HYPERTENSION
     Dates: start: 2011
  4. DICLOFENAC [Concomitant]
     Indication: RHEUMATOID ARTHRITIS

REACTIONS (2)
  - Myalgia [Recovered/Resolved]
  - Blood creatine phosphokinase increased [Recovering/Resolving]
